FAERS Safety Report 8393765 (Version 4)
Quarter: 2014Q1

REPORT INFORMATION
  Report Type: Spontaneous
  Country: US (occurrence: US)
  Receive Date: 20120207
  Receipt Date: 20140206
  Transmission Date: 20141002
  Serious: Yes (Other)
  Sender: FDA-Public Use
  Company Number: US-ROCHE-1037313

PATIENT
  Age: 22 Year
  Sex: Male
  Weight: 102.15 kg

DRUGS (2)
  1. ACCUTANE [Suspect]
     Indication: ACNE CYSTIC
     Route: 065
     Dates: start: 19870216, end: 19870716
  2. ACCUTANE [Suspect]
     Route: 065
     Dates: start: 1986, end: 1987

REACTIONS (8)
  - Crohn^s disease [Unknown]
  - Inflammatory bowel disease [Unknown]
  - Depression [Unknown]
  - Injury [Unknown]
  - Suicidal ideation [Unknown]
  - Irritable bowel syndrome [Unknown]
  - Rash [Unknown]
  - Confusional state [Unknown]
